FAERS Safety Report 7737157-0 (Version None)
Quarter: 2011Q3

REPORT INFORMATION
  Report Type: 
  Country: None (occurrence: None)
  Receive Date: 20110908
  Receipt Date: 20110808
  Transmission Date: 20111222
  Serious: No
  Sender: FDA-Public Use
  Company Number: US-BAYER-2011-072725

PATIENT
  Age: 31 Year
  Sex: Female
  Weight: 67 kg

DRUGS (1)
  1. ALEVE (CAPLET) [Suspect]
     Indication: TOOTHACHE
     Dosage: 1 DF, TID
     Route: 048
     Dates: start: 20110805

REACTIONS (1)
  - TOOTHACHE [None]
